FAERS Safety Report 15541835 (Version 1)
Quarter: 2018Q4

REPORT INFORMATION
  Report Type: Spontaneous
  Country: US (occurrence: US)
  Receive Date: 20181017
  Receipt Date: 20181017
  Transmission Date: 20190205
  Serious: Yes (Other)
  Sender: FDA-Public Use
  Company Number: None

PATIENT
  Age: 20 Year
  Sex: Female

DRUGS (6)
  1. VERAPAMIL [Concomitant]
     Active Substance: VERAPAMIL HYDROCHLORIDE
  2. ACETAMINOPHEN. [Concomitant]
     Active Substance: ACETAMINOPHEN
  3. DESOGESTREL [Concomitant]
     Active Substance: DESOGESTREL
  4. AIMOVIG [Suspect]
     Active Substance: ERENUMAB-AOOE
     Indication: MIGRAINE
     Dosage: ?          QUANTITY:70MG/ML 1 AUTOINJE;?
     Route: 058
     Dates: start: 20181010
  5. IBUPROFEN. [Concomitant]
     Active Substance: IBUPROFEN
  6. TOPIRAMATE. [Concomitant]
     Active Substance: TOPIRAMATE

REACTIONS (4)
  - Injection site pain [None]
  - Nausea [None]
  - Dysgeusia [None]
  - Decreased appetite [None]

NARRATIVE: CASE EVENT DATE: 20181012
